FAERS Safety Report 7572892-9 (Version None)
Quarter: 2011Q2

REPORT INFORMATION
  Report Type: 
  Country: None (occurrence: None)
  Receive Date: 20110627
  Receipt Date: 20110614
  Transmission Date: 20111010
  Serious: Yes (Hospitalization, Other)
  Sender: FDA-Public Use
  Company Number: US-ELI_LILLY_AND_COMPANY-US201105000855

PATIENT
  Age: 18 Year
  Sex: Female
  Weight: 48.526 kg

DRUGS (3)
  1. HYDROCODONE [Concomitant]
     Dosage: UNK
  2. CYMBALTA [Suspect]
     Indication: MUSCULOSKELETAL PAIN
     Dosage: 90MG
     Route: 048
     Dates: start: 20101201, end: 20110401
  3. YAZ                                /06358701/ [Concomitant]
     Dosage: UNK

REACTIONS (3)
  - WEIGHT DECREASED [None]
  - DECREASED APPETITE [None]
  - EATING DISORDER [None]
